FAERS Safety Report 5355160-5 (Version None)
Quarter: 2007Q2

REPORT INFORMATION
  Report Type: 
  Country: None (occurrence: None)
  Receive Date: 20070611
  Receipt Date: 20070529
  Transmission Date: 20071010
  Serious: Yes (Other)
  Sender: FDA-Public Use
  Company Number: 07H-163-0312670-00

PATIENT

DRUGS (8)
  1. PROMETHAZINE [Suspect]
     Indication: MOTION SICKNESS
     Dosage: SEE IMAGE
     Route: 030
  2. PROMETHAZINE [Suspect]
     Indication: NAUSEA
     Dosage: SEE IMAGE
     Route: 030
  3. PROMETHAZINE [Suspect]
     Indication: VOMITING
     Dosage: SEE IMAGE
     Route: 030
  4. SCOPOLAMINE [Suspect]
     Indication: MOTION SICKNESS
     Dosage: 0.5 MG
  5. DEXTROAMPHETAMINE SULFATE               (DEXAMFETAMINE) [Concomitant]
  6. CIPROFLOXACIN [Concomitant]
  7. NITROFURANTOIN [Concomitant]
  8. TRIMETHOPRIM/SULFAMETHOXAZOLE DS                 (BACTRIM/00086101/) [Concomitant]

REACTIONS (2)
  - URINARY RETENTION [None]
  - URINARY TRACT INFECTION [None]
